FAERS Safety Report 8175936-9 (Version None)
Quarter: 2012Q1

REPORT INFORMATION
  Report Type: 
  Country: None (occurrence: None)
  Receive Date: 20120228
  Receipt Date: 20120221
  Transmission Date: 20120608
  Serious: Yes (Other)
  Sender: FDA-Public Use
  Company Number: GER/GER/12/0023110

PATIENT
  Age: 24 Year
  Sex: Female
  Weight: 63 kg

DRUGS (6)
  1. VENLAFAXINE HCL [Suspect]
     Indication: ANXIETY DISORDER
     Dosage: 150 MG, 1 IN 1 D, ORAL
     Route: 048
  2. LORAZEPAM [Suspect]
     Indication: BORDERLINE PERSONALITY DISORDER
     Dosage: 8 MG, AS REQUIRED, ORAL
     Route: 048
     Dates: end: 20100601
  3. RISPERDAL [Suspect]
     Indication: POST-TRAUMATIC STRESS DISORDER
     Dosage: 6 MG, 1 IN 1 D, ORAL
     Route: 048
     Dates: end: 20100701
  4. LAMOTRIGINE [Suspect]
     Indication: DEPRESSION
     Dosage: 200 MG, 1 IN 1 D, ORAL
     Route: 048
  5. TRIMIPRAMINE MALEATE [Suspect]
     Indication: DEPRESSION
     Dosage: 400 MG, 1 IN 1 D, ORAL
     Route: 048
     Dates: end: 20100901
  6. FOLSAURE (FOLIC ACID) [Concomitant]

REACTIONS (2)
  - MATERNAL DRUGS AFFECTING FOETUS [None]
  - CAESAREAN SECTION [None]
